FAERS Safety Report 4321120-6 (Version None)
Quarter: 2004Q1

REPORT INFORMATION
  Report Type: 
  Country: None (occurrence: None)
  Receive Date: 20040322
  Receipt Date: 20040308
  Transmission Date: 20041129
  Serious: Yes (Disabling)
  Sender: FDA-Public Use
  Company Number: GB-GLAXOSMITHKLINE-B0325992A

PATIENT
  Age: 32 Year
  Sex: Male
  Weight: 88.63 kg

DRUGS (2)
  1. MALARONE [Suspect]
     Indication: MALARIA PROPHYLAXIS
     Route: 048
     Dates: start: 20040129, end: 20040202
  2. ASPIRIN [Concomitant]
     Dosage: 500MG THREE TIMES PER DAY
     Route: 048
     Dates: start: 20031112, end: 20031118

REACTIONS (2)
  - ABDOMINAL PAIN [None]
  - MYALGIA [None]
